FAERS Safety Report 20696276 (Version 1)
Quarter: 2022Q2

REPORT INFORMATION
  Report Type: Spontaneous
  Country: US (occurrence: None)
  Receive Date: 20220409
  Receipt Date: 20220409
  Transmission Date: 20220721
  Serious: Yes (unspecified)
  Sender: FDA-Public Use
  Company Number: None

PATIENT
  Age: 77 Year
  Sex: Male

DRUGS (1)
  1. ROSUVASTATIN [Suspect]
     Active Substance: ROSUVASTATIN
     Indication: Hyperlipidaemia
     Dosage: FREQUENCY : DAILY;?
     Route: 048
     Dates: start: 20220113, end: 20220127

REACTIONS (2)
  - Myalgia [None]
  - Rhabdomyolysis [None]

NARRATIVE: CASE EVENT DATE: 20220127
